FAERS Safety Report 9641075 (Version 1)
Quarter: 2013Q4

REPORT INFORMATION
  Report Type: Report from Study
  Country: US (occurrence: US)
  Receive Date: 20131023
  Receipt Date: 20131023
  Transmission Date: 20140711
  Serious: No
  Sender: FDA-Public Use
  Company Number: US-ABBVIE-13P-163-1044607-00

PATIENT
  Age: 39 Year
  Sex: Female

DRUGS (3)
  1. LUPRON DEPOT [Suspect]
     Indication: DYSMENORRHOEA
     Dates: start: 201212, end: 201301
  2. LUPRON DEPOT [Suspect]
     Indication: MENORRHAGIA
  3. LUPRON DEPOT [Suspect]
     Indication: GENITAL DISORDER FEMALE

REACTIONS (2)
  - Urticaria [Unknown]
  - Urticaria [Unknown]
